FAERS Safety Report 25627025 (Version 2)
Quarter: 2025Q4

REPORT INFORMATION
  Report Type: Spontaneous
  Country: US (occurrence: US)
  Receive Date: 20250731
  Receipt Date: 20251006
  Transmission Date: 20260117
  Serious: Yes (unspecified)
  Sender: DUTCH OPTHALMIC RESEARCH CENTER
  Company Number: US-D.O.R.C. International, b.v.-2181580

PATIENT
  Sex: Male

DRUGS (3)
  1. VISIONBLUE [Suspect]
     Active Substance: TRYPAN BLUE
  2. CIPROFLOXACIN [Concomitant]
     Active Substance: CIPROFLOXACIN
  3. KETOROLAC [Concomitant]
     Active Substance: KETOROLAC TROMETHAMINE

REACTIONS (1)
  - Corneal decompensation [Not Recovered/Not Resolved]
